FAERS Safety Report 4288031-6 (Version None)
Quarter: 2004Q1

REPORT INFORMATION
  Report Type: 
  Country: None (occurrence: None)
  Receive Date: 20040209
  Receipt Date: 20031120
  Transmission Date: 20041129
  Serious: No
  Sender: FDA-Public Use
  Company Number: US-GLAXOSMITHKLINE-A0440626A

PATIENT
  Age: 51 Year
  Sex: Female

DRUGS (3)
  1. PAXIL [Suspect]
     Indication: ANXIETY DISORDER
     Route: 048
     Dates: start: 20031118
  2. SYNTHROID [Concomitant]
  3. CORGARD [Concomitant]

REACTIONS (1)
  - ILL-DEFINED DISORDER [None]
